FAERS Safety Report 7370598-2 (Version None)
Quarter: 2011Q1

REPORT INFORMATION
  Report Type: 
  Country: None (occurrence: None)
  Receive Date: 20110323
  Receipt Date: 20110316
  Transmission Date: 20110831
  Serious: Yes (Hospitalization)
  Sender: FDA-Public Use
  Company Number: US-US-EMD SERONO, INC.-232721J09USA

PATIENT
  Sex: Male
  Weight: 91 kg

DRUGS (5)
  1. REBIF [Suspect]
     Dates: start: 20110201
  2. CYANOCOBALAMIN [Concomitant]
     Indication: VITAMIN SUPPLEMENTATION
     Route: 065
  3. XANAX [Concomitant]
     Indication: ANXIETY
  4. UNSPECIFIED MEDICATIONS [Concomitant]
  5. REBIF [Suspect]
     Indication: MULTIPLE SCLEROSIS
     Route: 058
     Dates: start: 20080722

REACTIONS (1)
  - CONVULSION [None]
